FAERS Safety Report 4323840-6 (Version None)
Quarter: 2004Q1

REPORT INFORMATION
  Report Type: 
  Country: None (occurrence: None)
  Receive Date: 20040326
  Receipt Date: 20010619
  Transmission Date: 20041129
  Serious: Yes (Hospitalization)
  Sender: FDA-Public Use
  Company Number: US-GLAXOSMITHKLINE-A0152643A

PATIENT
  Age: 63 Year
  Sex: Female
  Weight: 33.2 kg

DRUGS (2)
  1. ADVAIR DISKUS 100/50 [Suspect]
     Dosage: 1PUFF TWICE PER DAY
     Route: 055
     Dates: start: 20010519
  2. ALBUTEROL [Concomitant]

REACTIONS (3)
  - ASTHMA [None]
  - PNEUMONIA FUNGAL [None]
  - PRURITUS [None]
